FAERS Safety Report 7514497-1 (Version None)
Quarter: 2011Q2

REPORT INFORMATION
  Report Type: 
  Country: None (occurrence: None)
  Receive Date: 20110601
  Receipt Date: 20101124
  Transmission Date: 20111010
  Serious: No
  Sender: FDA-Public Use
  Company Number: US-BAYER-2010-004282

PATIENT

DRUGS (1)
  1. MAGNEVIST [Suspect]

REACTIONS (1)
  - COUGH [None]
